FAERS Safety Report 17179465 (Version 1)
Quarter: 2019Q4

REPORT INFORMATION
  Report Type: Spontaneous
  Country: GB (occurrence: GB)
  Receive Date: 20191219
  Receipt Date: 20191219
  Transmission Date: 20200122
  Serious: Yes (Hospitalization, Other)
  Sender: FDA-Public Use
  Company Number: GB-SA-2019SA345831

PATIENT
  Age: 39 Year
  Sex: Female
  Weight: 95 kg

DRUGS (7)
  1. MIRABEGRON [Concomitant]
     Active Substance: MIRABEGRON
     Dosage: UNK, UNK
     Route: 065
  2. OXYBUTYNIN. [Concomitant]
     Active Substance: OXYBUTYNIN CHLORIDE
     Dosage: UNK, UNK
     Route: 065
  3. LEVOTHYROXINE. [Concomitant]
     Active Substance: LEVOTHYROXINE
     Dosage: UNK, UNK
     Route: 065
  4. VITAMIN D [VITAMIN D NOS] [Concomitant]
     Active Substance: VITAMIN D NOS
     Dosage: UNK UNK, UNK
     Route: 065
  5. LEMTRADA [Suspect]
     Active Substance: ALEMTUZUMAB
     Indication: MULTIPLE SCLEROSIS
     Dosage: UNK UNK, UNK
     Route: 041
     Dates: start: 201709, end: 201809
  6. PROGESTERONE. [Concomitant]
     Active Substance: PROGESTERONE
     Dosage: UNK, UNK
     Route: 065
  7. BOTULINUM TOXIN TYPE A [Concomitant]
     Active Substance: BOTULINUM TOXIN TYPE A
     Dosage: UNK, UNK
     Route: 065

REACTIONS (8)
  - Lymphopenia [Unknown]
  - Pulmonary function test decreased [Recovering/Resolving]
  - Dyspnoea [Recovered/Resolved]
  - Malaise [Recovering/Resolving]
  - Atelectasis [Recovering/Resolving]
  - Acute interstitial pneumonitis [Recovering/Resolving]
  - Hypothyroidism [Unknown]
  - Chest pain [Recovering/Resolving]

NARRATIVE: CASE EVENT DATE: 201903
